FAERS Safety Report 9280018 (Version 1)
Quarter: 2013Q2

REPORT INFORMATION
  Report Type: Spontaneous
  Country: US (occurrence: None)
  Receive Date: 20130506
  Receipt Date: 20130506
  Transmission Date: 20140414
  Serious: No
  Sender: FDA-Public Use
  Company Number: None

PATIENT
  Age: 53 Year
  Sex: Male

DRUGS (1)
  1. CHANTIX [Suspect]
     Indication: SMOKING CESSATION THERAPY
     Dosage: CHANTIX STARTER PACK  TWICE DAILY  ORAL
     Route: 048
     Dates: start: 20130420, end: 20130503

REACTIONS (6)
  - Dizziness [None]
  - Fatigue [None]
  - Unevaluable event [None]
  - Nausea [None]
  - Insomnia [None]
  - Abnormal dreams [None]
